FAERS Safety Report 16029113 (Version 1)
Quarter: 2019Q2

REPORT INFORMATION
  Report Type: Spontaneous
  Country: US (occurrence: US)
  Receive Date: 20190304
  Receipt Date: 20190304
  Transmission Date: 20190711
  Serious: Yes (Disabling)
  Sender: FDA-Public Use
  Company Number: None

PATIENT
  Age: 71 Year
  Sex: Female
  Weight: 122.4 kg

DRUGS (1)
  1. IRBESARTAN. [Suspect]
     Active Substance: IRBESARTAN
     Indication: HYPERTENSION
     Dosage: ?          QUANTITY:1 TABLET(S);?
     Route: 048
     Dates: start: 20181110, end: 20190208

REACTIONS (11)
  - Product substitution issue [None]
  - Fungal infection [None]
  - Ear pruritus [None]
  - Drug ineffective [None]
  - Stress [None]
  - Erythema [None]
  - Insomnia [None]
  - Rash erythematous [None]
  - Rash pruritic [None]
  - Diarrhoea [None]
  - Recalled product administered [None]

NARRATIVE: CASE EVENT DATE: 20181121
